FAERS Safety Report 7988019-5 (Version None)
Quarter: 2011Q4

REPORT INFORMATION
  Report Type: 
  Country: None (occurrence: None)
  Receive Date: 20111216
  Receipt Date: 20101129
  Transmission Date: 20120403
  Serious: No
  Sender: FDA-Public Use
  Company Number: US-BRISTOL-MYERS SQUIBB COMPANY-15411051

PATIENT
  Age: 7 Year
  Sex: Male

DRUGS (1)
  1. ABILIFY [Suspect]
     Indication: AUTISM
     Dosage: INITIATED AT 2MG INCREASED TO 4MG A WEEK AND HALF AGO

REACTIONS (2)
  - MEDICATION ERROR [None]
  - INSOMNIA [None]
